FAERS Safety Report 14337775 (Version 1)
Quarter: 2017Q4

REPORT INFORMATION
  Report Type: Spontaneous
  Country: CR (occurrence: CR)
  Receive Date: 20171229
  Receipt Date: 20171229
  Transmission Date: 20180321
  Serious: Yes (Other)
  Sender: FDA-Public Use
  Company Number: CR-BRISTOL-MYERS SQUIBB COMPANY-BMS-2017-118584

PATIENT
  Age: 37 Year
  Sex: Female

DRUGS (1)
  1. ELIQUIS [Suspect]
     Active Substance: APIXABAN
     Indication: LIGAMENT OPERATION
     Dosage: 2.5 MG, UNK
     Route: 065

REACTIONS (2)
  - Haemarthrosis [Unknown]
  - Product use in unapproved indication [Unknown]
